FAERS Safety Report 19792907 (Version 2)
Quarter: 2021Q3

REPORT INFORMATION
  Report Type: Spontaneous
  Country: DE (occurrence: DE)
  Receive Date: 20210906
  Receipt Date: 20210909
  Transmission Date: 20211014
  Serious: Yes (Other)
  Sender: FDA-Public Use
  Company Number: DE-PFIZER INC-2021398608

PATIENT
  Age: 63 Year
  Sex: Female

DRUGS (2)
  1. CRIZOTINIB [Suspect]
     Active Substance: CRIZOTINIB
     Dosage: 250 MG, 1X/DAY
     Dates: end: 201603
  2. CRIZOTINIB [Suspect]
     Active Substance: CRIZOTINIB
     Indication: LUNG CANCER METASTATIC
     Dosage: UNK
     Dates: start: 201205

REACTIONS (10)
  - Oedema peripheral [Unknown]
  - Leukopenia [Unknown]
  - Tinnitus [Unknown]
  - Neoplasm progression [Unknown]
  - Pleural effusion [Unknown]
  - Dysaesthesia [Unknown]
  - Visual impairment [Unknown]
  - Bradycardia [Unknown]
  - Dizziness [Unknown]
  - Nausea [Unknown]

NARRATIVE: CASE EVENT DATE: 201504
